FAERS Safety Report 11941074 (Version 2)
Quarter: 2016Q1

REPORT INFORMATION
  Report Type: Spontaneous
  Country: US (occurrence: US)
  Receive Date: 20160122
  Receipt Date: 20160205
  Transmission Date: 20160526
  Serious: Yes (Other)
  Sender: FDA-Public Use
  Company Number: US-AKORN PHARMACEUTICALS-2016AKN00028

PATIENT
  Sex: Male

DRUGS (6)
  1. INTERFERON [Concomitant]
     Active Substance: INTERFERON
     Dosage: UNK, 3X/WEEK
  2. MOTRIN [Concomitant]
     Active Substance: IBUPROFEN
  3. MYORISAN [Suspect]
     Active Substance: ISOTRETINOIN
     Dosage: 40 MG, UNK
     Route: 048
     Dates: start: 20151028, end: 201511
  4. MYORISAN [Suspect]
     Active Substance: ISOTRETINOIN
     Dosage: 40 MG, UNK
     Route: 048
     Dates: start: 20150901, end: 20150915
  5. BACTRIM [Concomitant]
     Active Substance: SULFAMETHOXAZOLE\TRIMETHOPRIM
     Dosage: 800 MG, 1X/DAY
  6. ITRACONAZOL [Concomitant]
     Active Substance: ITRACONAZOLE

REACTIONS (8)
  - Fatigue [Unknown]
  - Unevaluable event [Unknown]
  - Exercise tolerance decreased [Unknown]
  - Somnolence [Unknown]
  - Emotional disorder [Unknown]
  - Eating disorder symptom [Unknown]
  - Dizziness [Unknown]
  - Abnormal behaviour [Unknown]

NARRATIVE: CASE EVENT DATE: 2015
